FAERS Safety Report 6121690-1 (Version None)
Quarter: 2009Q1

REPORT INFORMATION
  Report Type: 
  Country: None (occurrence: None)
  Receive Date: 20090313
  Receipt Date: 20090226
  Transmission Date: 20090719
  Serious: Yes (Other)
  Sender: FDA-Public Use
  Company Number: 8043544

PATIENT
  Age: 39 Year
  Sex: Male
  Weight: 99 kg

DRUGS (1)
  1. THEO-24 [Suspect]
     Indication: ASTHMA
     Dosage: 200 MG /D, PO
     Route: 048

REACTIONS (1)
  - HEPATITIS C [None]
